FAERS Safety Report 22217188 (Version 1)
Quarter: 2023Q2

REPORT INFORMATION
  Report Type: Spontaneous
  Country: US (occurrence: US)
  Receive Date: 20230417
  Receipt Date: 20230417
  Transmission Date: 20230722
  Serious: No
  Sender: FDA-Public Use
  Company Number: US-GSK-US2023AMR053379

PATIENT
  Sex: Female

DRUGS (2)
  1. SUMATRIPTAN SUCCINATE [Interacting]
     Active Substance: SUMATRIPTAN SUCCINATE
     Indication: Migraine
     Dosage: 50 MG
     Route: 065
  2. TYMLOS [Interacting]
     Active Substance: ABALOPARATIDE
     Indication: Osteoporosis
     Dosage: 80 UG, QD
     Route: 058
     Dates: start: 202301

REACTIONS (3)
  - Pain in extremity [Recovering/Resolving]
  - Stress [Not Recovered/Not Resolved]
  - Drug interaction [Unknown]
